FAERS Safety Report 11501443 (Version 2)
Quarter: 2015Q4

REPORT INFORMATION
  Report Type: Spontaneous
  Country: US (occurrence: US)
  Receive Date: 20150914
  Receipt Date: 20151113
  Transmission Date: 20160304
  Serious: Yes (Other)
  Sender: FDA-Public Use
  Company Number: US-ASTELLAS-2015US009667

PATIENT
  Sex: Female

DRUGS (3)
  1. MIRTAZAPINE. [Concomitant]
     Active Substance: MIRTAZAPINE
     Indication: PRODUCT USED FOR UNKNOWN INDICATION
     Dosage: UNK UNK, UNKNOWN FREQ.
     Route: 065
  2. TARCEVA [Suspect]
     Active Substance: ERLOTINIB HYDROCHLORIDE
     Indication: LUNG NEOPLASM MALIGNANT
     Route: 048
     Dates: start: 20141230
  3. AFATINIB [Concomitant]
     Active Substance: AFATINIB
     Indication: PRODUCT USED FOR UNKNOWN INDICATION
     Route: 048

REACTIONS (11)
  - Productive cough [Unknown]
  - Fatigue [Unknown]
  - Epistaxis [Unknown]
  - Decreased appetite [Unknown]
  - Rash [Unknown]
  - Confusional state [Unknown]
  - Dyspnoea [Unknown]
  - Dry mouth [Unknown]
  - Pulmonary oedema [Unknown]
  - Skin discolouration [Unknown]
  - Diarrhoea [Unknown]
